FAERS Safety Report 4802842-7 (Version None)
Quarter: 2005Q4

REPORT INFORMATION
  Report Type: 
  Country: None (occurrence: None)
  Receive Date: 20051017
  Receipt Date: 20051017
  Transmission Date: 20060501
  Serious: Yes (Other)
  Sender: FDA-Public Use
  Company Number: None

PATIENT
  Sex: Female
  Weight: 54.4316 kg

DRUGS (1)
  1. ZOCOR [Suspect]
     Dosage: 80 MG ONE DAY
     Dates: start: 20050801

REACTIONS (2)
  - MYALGIA [None]
  - PAIN IN EXTREMITY [None]
